FAERS Safety Report 18079845 (Version 4)
Quarter: 2020Q4

REPORT INFORMATION
  Report Type: Spontaneous
  Country: US (occurrence: US)
  Receive Date: 20200728
  Receipt Date: 20201026
  Transmission Date: 20210113
  Serious: Yes (Other)
  Sender: FDA-Public Use
  Company Number: US-ASTRAZENECA-2020SE93141

PATIENT
  Age: 25305 Day
  Sex: Female
  Weight: 112.5 kg

DRUGS (108)
  1. FARXIGA [Suspect]
     Active Substance: DAPAGLIFLOZIN PROPANEDIOL
     Indication: TYPE 2 DIABETES MELLITUS
     Route: 048
     Dates: start: 20170925
  2. FARXIGA [Suspect]
     Active Substance: DAPAGLIFLOZIN PROPANEDIOL
     Indication: TYPE 2 DIABETES MELLITUS
     Dosage: 10.0MG UNKNOWN
     Route: 048
     Dates: start: 20180815
  3. FARXIGA [Suspect]
     Active Substance: DAPAGLIFLOZIN PROPANEDIOL
     Indication: WEIGHT DECREASED
     Dosage: 10.0MG UNKNOWN
     Route: 048
     Dates: start: 20180207, end: 20200225
  4. SODIUM CHLORIDE. [Concomitant]
     Active Substance: SODIUM CHLORIDE
  5. CHLORAHEXADINE [Concomitant]
     Active Substance: CHLORHEXIDINE
  6. INSULIN [Concomitant]
     Active Substance: INSULIN NOS
  7. RILUZOLE. [Concomitant]
     Active Substance: RILUZOLE
  8. SMZ/TMP [Concomitant]
     Active Substance: SULFAMETHOXAZOLE\TRIMETHOPRIM
  9. REPAGLINIDE. [Concomitant]
     Active Substance: REPAGLINIDE
  10. PHOSPHORUS [Concomitant]
     Active Substance: PHOSPHORUS
  11. KEFLEX [Concomitant]
     Active Substance: CEPHALEXIN
  12. NIZORAL [Concomitant]
     Active Substance: KETOCONAZOLE
  13. ZOSYN [Concomitant]
     Active Substance: PIPERACILLIN SODIUM\TAZOBACTAM SODIUM
  14. HYDROMORPHONE HCL [Concomitant]
     Active Substance: HYDROMORPHONE HYDROCHLORIDE
  15. NOREPINEPHRINE BITARTRATE. [Concomitant]
     Active Substance: NOREPINEPHRINE BITARTRATE
  16. MULTI VITAMIN [Concomitant]
     Active Substance: VITAMINS
  17. SILDENAFIL. [Concomitant]
     Active Substance: SILDENAFIL
  18. AZELASTINE. [Concomitant]
     Active Substance: AZELASTINE HYDROCHLORIDE
  19. HYDROCHLOROTHIAZIDE. [Concomitant]
     Active Substance: HYDROCHLOROTHIAZIDE
  20. BYETTA [Concomitant]
     Active Substance: EXENATIDE
  21. PROVENTIL [Concomitant]
     Active Substance: ALBUTEROL
  22. ESCITALOPRAM [Concomitant]
     Active Substance: ESCITALOPRAM OXALATE
  23. CARAFATE [Concomitant]
     Active Substance: SUCRALFATE
  24. G1 COCKTAIL [Concomitant]
  25. LACTIC ACID. [Concomitant]
     Active Substance: LACTIC ACID
  26. ASTAXANTHIN [Concomitant]
     Active Substance: ASTAXANTHIN
  27. NOREPINEPHRINE. [Concomitant]
     Active Substance: NOREPINEPHRINE
  28. CHLORHEXIDINE [Concomitant]
     Active Substance: CHLORHEXIDINE
  29. ZEMURON [Concomitant]
     Active Substance: ROCURONIUM BROMIDE
  30. FARXIGA [Suspect]
     Active Substance: DAPAGLIFLOZIN PROPANEDIOL
     Indication: WEIGHT DECREASED
     Dosage: 10.0MG UNKNOWN
     Route: 048
     Dates: start: 20170404
  31. FARXIGA [Suspect]
     Active Substance: DAPAGLIFLOZIN PROPANEDIOL
     Indication: TYPE 2 DIABETES MELLITUS
     Dosage: 10.0MG UNKNOWN
     Route: 048
     Dates: start: 20180207, end: 20200225
  32. GLUCAGON. [Concomitant]
     Active Substance: GLUCAGON
  33. ACETAMINOPHEN. [Concomitant]
     Active Substance: ACETAMINOPHEN
  34. ENOXAPARIN SODIUM. [Concomitant]
     Active Substance: ENOXAPARIN SODIUM
  35. BUPROPION. [Concomitant]
     Active Substance: BUPROPION
  36. ZOLPIDEM [Concomitant]
     Active Substance: ZOLPIDEM TARTRATE
  37. ERYTHROMYCIN. [Concomitant]
     Active Substance: ERYTHROMYCIN
  38. VITAMIN D [Concomitant]
     Active Substance: VITAMIN D NOS
  39. AMLODIPINE BESYLATE. [Concomitant]
     Active Substance: AMLODIPINE BESYLATE
  40. LANTUS SOLOSTAR [Concomitant]
     Active Substance: INSULIN GLARGINE
  41. METRONIDAZOLE. [Concomitant]
     Active Substance: METRONIDAZOLE
  42. ENOXAPARIN [Concomitant]
     Active Substance: ENOXAPARIN
  43. FARXIGA [Suspect]
     Active Substance: DAPAGLIFLOZIN PROPANEDIOL
     Indication: WEIGHT DECREASED
     Route: 048
     Dates: start: 20170925
  44. FARXIGA [Suspect]
     Active Substance: DAPAGLIFLOZIN PROPANEDIOL
     Indication: HYPOTENSION
     Route: 048
     Dates: start: 20170925
  45. FARXIGA [Suspect]
     Active Substance: DAPAGLIFLOZIN PROPANEDIOL
     Indication: TYPE 2 DIABETES MELLITUS
     Dosage: 10.0MG UNKNOWN
     Route: 048
     Dates: start: 20170404
  46. FARXIGA [Suspect]
     Active Substance: DAPAGLIFLOZIN PROPANEDIOL
     Indication: HYPOTENSION
     Dosage: 10.0MG UNKNOWN
     Route: 048
     Dates: start: 20180815
  47. POTASSIUM CHLORIDE. [Concomitant]
     Active Substance: POTASSIUM CHLORIDE
  48. FLAGYL [Concomitant]
     Active Substance: METRONIDAZOLE\METRONIDAZOLE HYDROCHLORIDE
  49. CHLORHEXIDINE GLUCONATE. [Concomitant]
     Active Substance: CHLORHEXIDINE GLUCONATE
  50. PRAMIPEXOLE. [Concomitant]
     Active Substance: PRAMIPEXOLE
  51. DICYCLOMINE [Concomitant]
     Active Substance: DICYCLOMINE HYDROCHLORIDE
  52. ZANTAC [Concomitant]
     Active Substance: RANITIDINE HYDROCHLORIDE
  53. INVOKANA [Concomitant]
     Active Substance: CANAGLIFLOZIN
  54. PANTOPRAZOLE [Concomitant]
     Active Substance: PANTOPRAZOLE
  55. LIDOCAINE. [Concomitant]
     Active Substance: LIDOCAINE
  56. COENZYME Q10 [Concomitant]
     Active Substance: DIETARY SUPPLEMENT\UBIDECARENONE
  57. FARXIGA [Suspect]
     Active Substance: DAPAGLIFLOZIN PROPANEDIOL
     Indication: WEIGHT DECREASED
     Dosage: 10.0MG UNKNOWN
     Route: 048
     Dates: start: 20180815
  58. PROPOFOL. [Concomitant]
     Active Substance: PROPOFOL
  59. WHITE PETROLATUM-MINERAL OIL [Concomitant]
  60. FENOFIBRATE. [Concomitant]
     Active Substance: FENOFIBRATE
  61. MELOXICAM. [Concomitant]
     Active Substance: MELOXICAM
  62. BROMPHENIR-PSEUDOEPHED [Concomitant]
  63. PHENYLEPHRINE [Concomitant]
     Active Substance: PHENYLEPHRINE HYDROCHLORIDE
  64. POLICOSANOL [Concomitant]
  65. VANCOMYCIN [Concomitant]
     Active Substance: VANCOMYCIN
  66. PREVNAR [Concomitant]
     Active Substance: PNEUMOCOCCAL 7-VALENT CONJUGATE VACCINE (DIPHTHERIA CRM197 PROTEIN)
  67. SUBLIMAZE [Concomitant]
     Active Substance: FENTANYL CITRATE
  68. PRILOSEC [Concomitant]
     Active Substance: OMEPRAZOLE MAGNESIUM
  69. GLUCOTROL [Concomitant]
     Active Substance: GLIPIZIDE
  70. HYDROCODONE-ACETAMINOPHEN [Concomitant]
     Active Substance: ACETAMINOPHEN\HYDROCODONE
  71. FUROSEMIDE. [Concomitant]
     Active Substance: FUROSEMIDE
  72. TRAZODONE [Concomitant]
     Active Substance: TRAZODONE HYDROCHLORIDE
  73. PROAIR HFA [Concomitant]
     Active Substance: ALBUTEROL SULFATE
  74. SINGULAIR [Concomitant]
     Active Substance: MONTELUKAST SODIUM
  75. WARFARIN SODIUM. [Concomitant]
     Active Substance: WARFARIN SODIUM
  76. SERTRALINE [Concomitant]
     Active Substance: SERTRALINE HYDROCHLORIDE
  77. METOPROLOL TARTRATE. [Concomitant]
     Active Substance: METOPROLOL TARTRATE
  78. FENTANYL. [Concomitant]
     Active Substance: FENTANYL
  79. MAGNESIUM [Concomitant]
     Active Substance: MAGNESIUM
  80. RED YEAST RICE EXTRACT [Concomitant]
  81. PIPERACILLIN AND TAZOBACTAM [Concomitant]
     Active Substance: PIPERACILLIN SODIUM\TAZOBACTAM SODIUM
  82. FLUCONAZOLE. [Concomitant]
     Active Substance: FLUCONAZOLE
  83. NYSTATIN. [Concomitant]
     Active Substance: NYSTATIN
  84. GABAPENTIN. [Concomitant]
     Active Substance: GABAPENTIN
  85. FARXIGA [Suspect]
     Active Substance: DAPAGLIFLOZIN PROPANEDIOL
     Indication: HYPOTENSION
     Dosage: 10.0MG UNKNOWN
     Route: 048
     Dates: start: 20170404
  86. FARXIGA [Suspect]
     Active Substance: DAPAGLIFLOZIN PROPANEDIOL
     Indication: HYPOTENSION
     Dosage: 10.0MG UNKNOWN
     Route: 048
     Dates: start: 20180207, end: 20200225
  87. CLEOCIN [Concomitant]
     Active Substance: CLINDAMYCIN PHOSPHATE
  88. VANCOCIN [Concomitant]
     Active Substance: VANCOMYCIN HYDROCHLORIDE
  89. TOPIRAMATE. [Concomitant]
     Active Substance: TOPIRAMATE
  90. CELECOXIB. [Concomitant]
     Active Substance: CELECOXIB
  91. FOLIC ACID. [Concomitant]
     Active Substance: FOLIC ACID
  92. ACYCLOVIR. [Concomitant]
     Active Substance: ACYCLOVIR
  93. TRIAMCINOLONE [Concomitant]
     Active Substance: TRIAMCINOLONE
  94. VALACYCLOVIR [Concomitant]
     Active Substance: VALACYCLOVIR HYDROCHLORIDE
  95. VICTOZA [Concomitant]
     Active Substance: LIRAGLUTIDE
  96. DEXAMETHASONE. [Concomitant]
     Active Substance: DEXAMETHASONE
  97. SERTRALINE HCL [Concomitant]
     Active Substance: SERTRALINE HYDROCHLORIDE
  98. GLUCOPHAGE-XR [Concomitant]
  99. JANUMET XR [Concomitant]
     Active Substance: METFORMIN HYDROCHLORIDE\SITAGLIPTIN PHOSPHATE
  100. LINEZOLID. [Concomitant]
     Active Substance: LINEZOLID
  101. DEXTROSE. [Concomitant]
     Active Substance: DEXTROSE
  102. SODIUM BICARBONATE. [Concomitant]
     Active Substance: SODIUM BICARBONATE
  103. HYDROCODONE [Concomitant]
     Active Substance: HYDROCODONE
  104. OXYCODONE [Concomitant]
     Active Substance: OXYCODONE
  105. ACETAMINOP-CODEINE [Concomitant]
  106. LEVEMIR [Concomitant]
     Active Substance: INSULIN DETEMIR
  107. MONTELUKAST SOD [Concomitant]
     Active Substance: MONTELUKAST SODIUM
  108. NOVOLOG [Concomitant]
     Active Substance: INSULIN ASPART

REACTIONS (6)
  - Abscess [Unknown]
  - Septic shock [Recovered/Resolved]
  - Cellulitis [Unknown]
  - Necrotising soft tissue infection [Unknown]
  - Fournier^s gangrene [Unknown]
  - Sepsis [Unknown]

NARRATIVE: CASE EVENT DATE: 20180828
